FAERS Safety Report 8985903 (Version 1)
Quarter: 2012Q4

REPORT INFORMATION
  Report Type: 
  Country: FR (occurrence: FR)
  Receive Date: 20121226
  Receipt Date: 20121226
  Transmission Date: 20130627
  Serious: Yes (Hospitalization, Other)
  Sender: FDA-Public Use
  Company Number: PHHY2012FR119183

PATIENT
  Sex: Female

DRUGS (1)
  1. LEELOO [Suspect]
     Indication: CONTRACEPTION
     Dosage: 1 DF, QD
     Route: 048
     Dates: start: 2010, end: 201212

REACTIONS (4)
  - Intestinal ischaemia [Recovering/Resolving]
  - Abdominal pain [Unknown]
  - Gastric haemorrhage [Recovering/Resolving]
  - Vaginal haemorrhage [Unknown]
